FAERS Safety Report 16421154 (Version 2)
Quarter: 2019Q2

REPORT INFORMATION
  Report Type: Report from Study
  Country: DE (occurrence: DE)
  Receive Date: 20190612
  Receipt Date: 20190620
  Transmission Date: 20190711
  Serious: Yes (Other)
  Sender: FDA-Public Use
  Company Number: DE-ACTELION-A-NJ2019-191547

PATIENT
  Age: 63 Year
  Sex: Female

DRUGS (3)
  1. VENTAVIS [Suspect]
     Active Substance: ILOPROST
     Dosage: 20 MCG, QID
     Route: 055
     Dates: start: 20190308
  2. VENTAVIS [Suspect]
     Active Substance: ILOPROST
     Dosage: 10 MCG, 6 TIMES A DAY
     Route: 055
     Dates: end: 20190515
  3. VENTAVIS [Suspect]
     Active Substance: ILOPROST
     Indication: PULMONARY ARTERIAL HYPERTENSION
     Dosage: 10 MCG, QID
     Route: 055
     Dates: start: 20190221

REACTIONS (2)
  - Circulatory collapse [Unknown]
  - Nausea [Recovered/Resolved]

NARRATIVE: CASE EVENT DATE: 20190308
